FAERS Safety Report 17494706 (Version 1)
Quarter: 2020Q1

REPORT INFORMATION
  Report Type: Spontaneous
  Country: US (occurrence: US)
  Receive Date: 20200303
  Receipt Date: 20200303
  Transmission Date: 20200409
  Serious: Yes (Other)
  Sender: FDA-Public Use
  Company Number: None

PATIENT
  Age: 56 Year
  Sex: Female
  Weight: 90 kg

DRUGS (5)
  1. GAMUNEX [Suspect]
     Active Substance: HUMAN IMMUNOGLOBULIN G
     Indication: ENCEPHALITIS
     Route: 042
     Dates: start: 20200228, end: 20200228
  2. GAMUNEX [Suspect]
     Active Substance: HUMAN IMMUNOGLOBULIN G
     Indication: AUTOIMMUNE ENCEPHALOPATHY
     Route: 042
     Dates: start: 20200228, end: 20200228
  3. SODIUM CHLORIDE 0.9% 500ML [Concomitant]
  4. DIPHENHYDRAMINE 25MG [Concomitant]
     Active Substance: DIPHENHYDRAMINE
  5. ACETAMINOPHEN 650MG [Concomitant]

REACTIONS (1)
  - Chromaturia [None]

NARRATIVE: CASE EVENT DATE: 20200302
